FAERS Safety Report 7546620-7 (Version None)
Quarter: 2011Q2

REPORT INFORMATION
  Report Type: 
  Country: None (occurrence: None)
  Receive Date: 20110614
  Receipt Date: 20110610
  Transmission Date: 20111010
  Serious: Yes (Death, Hospitalization)
  Sender: FDA-Public Use
  Company Number: BE-PFIZER INC-2011127069

PATIENT
  Sex: Male

DRUGS (1)
  1. VFEND [Suspect]

REACTIONS (1)
  - GENERAL PHYSICAL HEALTH DETERIORATION [None]
